FAERS Safety Report 16790072 (Version 1)
Quarter: 2019Q3

REPORT INFORMATION
  Report Type: Spontaneous
  Country: AU (occurrence: AU)
  Receive Date: 20190910
  Receipt Date: 20190910
  Transmission Date: 20191005
  Serious: Yes (Other)
  Sender: FDA-Public Use
  Company Number: AU-MYLANLABS-2019M1084042

PATIENT
  Age: 50 Year
  Sex: Female

DRUGS (15)
  1. MOVICOL [Concomitant]
     Active Substance: POLYETHYLENE GLYCOL 3350\POTASSIUM CHLORIDE\SODIUM BICARBONATE\SODIUM CHLORIDE
  2. METFORMIN [Concomitant]
     Active Substance: METFORMIN HYDROCHLORIDE
  3. LURASIDONE HYDROCHLORIDE. [Concomitant]
     Active Substance: LURASIDONE HYDROCHLORIDE
  4. ROSUVASTATIN CALCIUM. [Concomitant]
     Active Substance: ROSUVASTATIN CALCIUM
  5. ESCITALOPRAM [Suspect]
     Active Substance: ESCITALOPRAM OXALATE
     Indication: PRODUCT USED FOR UNKNOWN INDICATION
     Dosage: UNK
  6. CLOZARIL [Suspect]
     Active Substance: CLOZAPINE
     Indication: PRODUCT USED FOR UNKNOWN INDICATION
     Dosage: UNK
  7. SENNA                              /00142201/ [Concomitant]
     Active Substance: SENNA LEAF
  8. LORAZEPAM. [Concomitant]
     Active Substance: LORAZEPAM
  9. CALCIUM CARBONATE. [Concomitant]
     Active Substance: CALCIUM CARBONATE
  10. MIRTAZAPINE. [Concomitant]
     Active Substance: MIRTAZAPINE
  11. OLANZAPINE. [Suspect]
     Active Substance: OLANZAPINE
     Indication: PRODUCT USED FOR UNKNOWN INDICATION
     Dosage: UNK
  12. VITAMIN B12 [Concomitant]
     Active Substance: CYANOCOBALAMIN
  13. ZUCLOPENTHIXOL [Concomitant]
     Active Substance: ZUCLOPENTHIXOL
  14. CALTRATE                           /00944201/ [Concomitant]
     Active Substance: CALCIUM CARBONATE\CHOLECALCIFEROL
  15. PALIPERIDONE. [Suspect]
     Active Substance: PALIPERIDONE
     Indication: PRODUCT USED FOR UNKNOWN INDICATION
     Dosage: UNK

REACTIONS (17)
  - Lymphocyte count decreased [Unknown]
  - Mean cell haemoglobin decreased [Unknown]
  - Feeling cold [Unknown]
  - Frustration tolerance decreased [Unknown]
  - Hallucination, auditory [Unknown]
  - Hyperhidrosis [Unknown]
  - Eczema [Unknown]
  - Delusion [Unknown]
  - Intentional self-injury [Unknown]
  - Metamyelocyte count increased [Unknown]
  - Monocyte count decreased [Unknown]
  - Amnesia [Unknown]
  - Emotional distress [Unknown]
  - Mental impairment [Unknown]
  - Myelocyte count increased [Unknown]
  - Eosinophil count decreased [Unknown]
  - Haemoglobin decreased [Unknown]
